FAERS Safety Report 21735001 (Version 6)
Quarter: 2024Q1

REPORT INFORMATION
  Report Type: Other
  Country: CA (occurrence: None)
  Receive Date: 20221215
  Receipt Date: 20240126
  Transmission Date: 20240409
  Serious: Yes (Hospitalization, Other)
  Sender: FDA-Public Use
  Company Number: CA-ROCHE-3236917

PATIENT
  Sex: Female

DRUGS (1)
  1. OCREVUS [Suspect]
     Active Substance: OCRELIZUMAB
     Indication: Primary progressive multiple sclerosis
     Dosage: 300 MG AT DAY 0 AND 14, THEN 600 MG EVERY 6 MONTH
     Route: 042
     Dates: start: 20181026

REACTIONS (10)
  - COVID-19 [Recovered/Resolved]
  - Angina pectoris [Recovered/Resolved]
  - Fall [Unknown]
  - Asthenia [Recovered/Resolved]
  - Pelvic fracture [Recovered/Resolved]
  - Face injury [Recovered/Resolved]
  - Joint injury [Recovered/Resolved]
  - Dermatitis contact [Unknown]
  - Osteoporosis [Unknown]
  - Transient ischaemic attack [Recovered/Resolved]
